FAERS Safety Report 6861404-0 (Version None)
Quarter: 2010Q3

REPORT INFORMATION
  Report Type: 
  Country: None (occurrence: None)
  Receive Date: 20100716
  Receipt Date: 20100708
  Transmission Date: 20110219
  Serious: Yes (Hospitalization)
  Sender: FDA-Public Use
  Company Number: RB-12723-2010

PATIENT
  Sex: Male
  Weight: 53 kg

DRUGS (1)
  1. SUBOXONE [Suspect]
     Indication: DRUG DEPENDENCE
     Dosage: (14 MG SUBLINGUAL)
     Route: 060
     Dates: start: 20100623

REACTIONS (1)
  - SEPSIS [None]
